APPROVED DRUG PRODUCT: RISPERIDONE
Active Ingredient: RISPERIDONE
Strength: 2MG
Dosage Form/Route: TABLET, ORALLY DISINTEGRATING;ORAL
Application: A076996 | Product #003
Applicant: ACTAVIS LABORATORIES FL INC
Approved: Apr 19, 2011 | RLD: No | RS: No | Type: DISCN